FAERS Safety Report 7534712-8 (Version None)
Quarter: 2011Q2

REPORT INFORMATION
  Report Type: 
  Country: None (occurrence: None)
  Receive Date: 20110609
  Receipt Date: 20110512
  Transmission Date: 20111010
  Serious: Yes (Other)
  Sender: FDA-Public Use
  Company Number: PHNR2007AU01991

PATIENT
  Sex: Female

DRUGS (7)
  1. APREPITANT [Concomitant]
     Dosage: MONTHLY
  2. CLOZAPINE [Suspect]
     Indication: SCHIZOPHRENIA
     Dosage: 200 MG, UNK
     Route: 048
     Dates: start: 20010626
  3. MAXOLON [Concomitant]
  4. DEXAMETHASONE [Concomitant]
  5. TROPISETRON [Concomitant]
     Dosage: UNK
  6. HALOPERIDOL [Concomitant]
  7. CHEMOTHERAPEUTICS NOS [Concomitant]
     Indication: BREAST CANCER

REACTIONS (5)
  - NEUTROPHIL COUNT DECREASED [None]
  - WHITE BLOOD CELL COUNT DECREASED [None]
  - BREAST CANCER [None]
  - AGRANULOCYTOSIS [None]
  - NEUTROPENIA [None]
